FAERS Safety Report 5402140-7 (Version None)
Quarter: 2007Q3

REPORT INFORMATION
  Report Type: 
  Country: None (occurrence: None)
  Receive Date: 20070801
  Receipt Date: 20070720
  Transmission Date: 20080115
  Serious: Yes (Other)
  Sender: FDA-Public Use
  Company Number: US-ELI_LILLY_AND_COMPANY-US200707005010

PATIENT
  Age: 50 Year
  Sex: Female

DRUGS (6)
  1. ZYPREXA [Suspect]
     Indication: BIPOLAR DISORDER
     Dosage: 5 MG, DAILY (1/D)
     Dates: end: 20070101
  2. CAPROLISIN [Concomitant]
     Dosage: 500 MG, 2/D
  3. SINGULAIR [Concomitant]
     Dosage: 10 MG, 2/D
  4. LUNESTA [Concomitant]
     Dosage: 3 MG, EACH EVENING
  5. DILANTIN KAPSEAL [Concomitant]
  6. ALBUTEROL [Concomitant]
     Dosage: UNK, AS NEEDED

REACTIONS (8)
  - ALANINE AMINOTRANSFERASE INCREASED [None]
  - ASPARTATE AMINOTRANSFERASE INCREASED [None]
  - BLOOD ALKALINE PHOSPHATASE INCREASED [None]
  - CONTUSION [None]
  - GRAND MAL CONVULSION [None]
  - HEPATITIS B ANTIBODY POSITIVE [None]
  - HEPATITIS C ANTIBODY POSITIVE [None]
  - RASH [None]
